FAERS Safety Report 6847552-X (Version None)
Quarter: 2010Q3

REPORT INFORMATION
  Report Type: 
  Country: None (occurrence: None)
  Receive Date: 20100716
  Receipt Date: 20100709
  Transmission Date: 20110219
  Serious: Yes (Other)
  Sender: FDA-Public Use
  Company Number: US-BAYER-201017902BCC

PATIENT
  Age: 37 Year
  Sex: Female
  Weight: 54 kg

DRUGS (2)
  1. MIDOL [Suspect]
     Indication: ADNEXA UTERI PAIN
     Dosage: AS USED: 2/1 DF
     Route: 048
     Dates: start: 20100609
  2. TYLENOL [Concomitant]
     Route: 065
     Dates: start: 20100608

REACTIONS (6)
  - ADNEXA UTERI PAIN [None]
  - AGITATION [None]
  - DYSPNOEA [None]
  - NERVOUSNESS [None]
  - RESPIRATORY RATE INCREASED [None]
  - TREMOR [None]
